FAERS Safety Report 5449667-X (Version None)
Quarter: 2007Q3

REPORT INFORMATION
  Report Type: 
  Country: None (occurrence: None)
  Receive Date: 20070910
  Receipt Date: 20070910
  Transmission Date: 20080115
  Serious: No
  Sender: FDA-Public Use
  Company Number: None

PATIENT
  Age: 72 Year
  Sex: Female
  Weight: 58.0604 kg

DRUGS (2)
  1. XANAX XR [Suspect]
     Indication: ANXIETY
     Dosage: 2 MG BID PO
     Route: 048
     Dates: start: 20060617
  2. XANAX XR [Suspect]
     Indication: MAJOR DEPRESSION
     Dosage: 2 MG BID PO
     Route: 048
     Dates: start: 20060617

REACTIONS (1)
  - THERAPEUTIC RESPONSE UNEXPECTED WITH DRUG SUBSTITUTION [None]
